FAERS Safety Report 6909166-2 (Version None)
Quarter: 2010Q3

REPORT INFORMATION
  Report Type: 
  Country: None (occurrence: None)
  Receive Date: 20100805
  Receipt Date: 20100728
  Transmission Date: 20110219
  Serious: Yes (Other)
  Sender: FDA-Public Use
  Company Number: US-JNJFOC-20100702251

PATIENT
  Sex: Male

DRUGS (4)
  1. EXTRA STRENGTH TYLENOL [Suspect]
     Indication: PAIN
     Dosage: 1000MG 2 TO 3 TIMES A DAY ALMOST EVERY DAY FOR OVER 1 YEAR
     Route: 048
  2. EXTRA STRENGTH TYLENOL [Suspect]
     Indication: KNEE ARTHROPLASTY
     Dosage: 1000MG 2 TO 3 TIMES A DAY ALMOST EVERY DAY FOR OVER 1 YEAR
     Route: 048
  3. EXTRA STRENGTH TYLENOL [Suspect]
     Indication: MUSCULOSKELETAL PAIN
     Dosage: 1000MG 2 TO 3 TIMES A DAY ALMOST EVERY DAY FOR OVER 1 YEAR
     Route: 048
  4. EXTRA STRENGTH TYLENOL [Suspect]
     Indication: INTERVERTEBRAL DISC PROTRUSION
     Dosage: 1000MG 2 TO 3 TIMES A DAY ALMOST EVERY DAY FOR OVER 1 YEAR
     Route: 048

REACTIONS (1)
  - NEPHROLITHIASIS [None]
